FAERS Safety Report 7962197-6 (Version None)
Quarter: 2011Q4

REPORT INFORMATION
  Report Type: 
  Country: None (occurrence: None)
  Receive Date: 20111207
  Receipt Date: 20111128
  Transmission Date: 20120403
  Serious: Yes (Other)
  Sender: FDA-Public Use
  Company Number: PHHY2011BR104885

PATIENT
  Age: 74 Year
  Sex: Female
  Weight: 67 kg

DRUGS (4)
  1. DIOVAN [Suspect]
     Indication: HYPERTENSION
     Route: 048
     Dates: start: 20080101
  2. EXFORGE [Suspect]
     Indication: HYPERTENSION
     Dosage: 1 DF, (160/5MG) DAILY
     Dates: start: 20100101
  3. DIOVAN [Suspect]
     Dosage: 0.5 DF, (320MG) DAILY
     Dates: start: 20111125, end: 20111127
  4. DIOVAN [Suspect]
     Dosage: 320 MG, DAILY
     Dates: start: 20111128

REACTIONS (3)
  - BLOOD PRESSURE INCREASED [None]
  - DIABETES MELLITUS [None]
  - WRONG TECHNIQUE IN DRUG USAGE PROCESS [None]
